FAERS Safety Report 6437404-1 (Version None)
Quarter: 2009Q4

REPORT INFORMATION
  Report Type: 
  Country: None (occurrence: None)
  Receive Date: 20091112
  Receipt Date: 20091106
  Transmission Date: 20100525
  Serious: Yes (Death, Hospitalization)
  Sender: FDA-Public Use
  Company Number: US-AMGEN-KDL362607

PATIENT
  Sex: Male
  Weight: 125.3 kg

DRUGS (11)
  1. PROCRIT [Suspect]
     Indication: RENAL FAILURE CHRONIC
     Route: 058
     Dates: start: 20081101
  2. PREDNISONE [Concomitant]
  3. OSCAL [Concomitant]
  4. LASIX [Concomitant]
  5. COREG [Concomitant]
  6. POTASSIUM CHLORIDE [Concomitant]
  7. ALTACE [Concomitant]
  8. CELLCEPT [Concomitant]
  9. FOLIC ACID [Concomitant]
  10. COUMADIN [Concomitant]
  11. METOPROLOL [Concomitant]

REACTIONS (7)
  - CARDIAC DISORDER [None]
  - CHILLS [None]
  - DEATH [None]
  - DIALYSIS [None]
  - HOSPITALISATION [None]
  - PYREXIA [None]
  - WHITE BLOOD CELL COUNT INCREASED [None]
